FAERS Safety Report 7724857-1 (Version None)
Quarter: 2011Q3

REPORT INFORMATION
  Report Type: 
  Country: None (occurrence: None)
  Receive Date: 20110901
  Receipt Date: 20110825
  Transmission Date: 20111222
  Serious: Yes (Death)
  Sender: FDA-Public Use
  Company Number: DE-BAXTER-2011BH024677

PATIENT
  Age: 13 Year
  Sex: Male

DRUGS (2)
  1. ALL OTHER THERAPEUTIC PRODUCTS [Concomitant]
     Indication: PALLIATIVE CARE
     Route: 065
  2. FEIBA [Suspect]
     Indication: VON WILLEBRAND'S DISEASE
     Route: 065
     Dates: start: 20110726

REACTIONS (4)
  - CONVULSION [None]
  - INCORRECT ROUTE OF DRUG ADMINISTRATION [None]
  - INJECTION SITE EXTRAVASATION [None]
  - INJECTION SITE REACTION [None]
